FAERS Safety Report 13716562 (Version 2)
Quarter: 2017Q3

REPORT INFORMATION
  Report Type: Report from Study
  Country: BR (occurrence: BR)
  Receive Date: 20170705
  Receipt Date: 20170705
  Transmission Date: 20171127
  Serious: Yes (Other)
  Sender: FDA-Public Use
  Company Number: PHHY2017BR096584

PATIENT
  Sex: Male
  Weight: 70 kg

DRUGS (3)
  1. VITALUX PLUS [Suspect]
     Active Substance: VITAMINS
     Indication: PROPHYLAXIS
     Dosage: UNK UNK, QHS
     Route: 065
  2. AZOPT [Suspect]
     Active Substance: BRINZOLAMIDE
     Indication: OCULAR HYPERTENSION
  3. AZOPT [Suspect]
     Active Substance: BRINZOLAMIDE
     Indication: EYE DISORDER
     Dosage: 2 DRP, Q12H (IN EACH EYES)
     Route: 047

REACTIONS (2)
  - Dementia Alzheimer^s type [Recovering/Resolving]
  - Prostate cancer [Recovering/Resolving]
